FAERS Safety Report 11311638 (Version 2)
Quarter: 2015Q3

REPORT INFORMATION
  Report Type: Report from Study
  Country: US (occurrence: US)
  Receive Date: 20150727
  Receipt Date: 20150811
  Transmission Date: 20151125
  Serious: Yes (Hospitalization, Other)
  Sender: FDA-Public Use
  Company Number: US-GILEAD-2015-0164591

PATIENT
  Age: 67 Year
  Sex: Female

DRUGS (3)
  1. AMBRISENTAN [Suspect]
     Active Substance: AMBRISENTAN
     Indication: PRODUCT USED FOR UNKNOWN INDICATION
     Dosage: 10 MG, QD
     Route: 065
     Dates: start: 20101206
  2. TYVASO [Concomitant]
     Active Substance: TREPROSTINIL
  3. ADCIRCA [Concomitant]
     Active Substance: TADALAFIL

REACTIONS (10)
  - Resuscitation [Unknown]
  - Fall [Unknown]
  - Peripheral swelling [Unknown]
  - Dialysis [Unknown]
  - Blood glucose decreased [Unknown]
  - Seizure [Unknown]
  - Renal failure [Unknown]
  - Head injury [Unknown]
  - Diabetes mellitus [Unknown]
  - Chest pain [Unknown]
